FAERS Safety Report 24186853 (Version 4)
Quarter: 2025Q4

REPORT INFORMATION
  Report Type: Spontaneous
  Country: CA (occurrence: CA)
  Receive Date: 20240808
  Receipt Date: 20251125
  Transmission Date: 20260118
  Serious: Yes (Death, Other)
  Sender: BRISTOL-MYERS SQUIBB COMPANY
  Company Number: CA-BRISTOL-MYERS SQUIBB COMPANY-2024-124695

PATIENT
  Age: 40 Year
  Sex: Female
  Weight: 96 kg

DRUGS (523)
  1. ORENCIA [Suspect]
     Active Substance: ABATACEPT
     Indication: Rheumatoid arthritis
  2. TRIAMCINOLONE ACETONIDE [Suspect]
     Active Substance: TRIAMCINOLONE ACETONIDE
     Indication: Rheumatoid arthritis
     Route: 058
  3. TRIAMCINOLONE ACETONIDE [Suspect]
     Active Substance: TRIAMCINOLONE ACETONIDE
     Dosage: SUSPENSION INTRA- ARTICULAR
  4. TRIAMCINOLONE ACETONIDE [Suspect]
     Active Substance: TRIAMCINOLONE ACETONIDE
     Route: 058
  5. TRIAMCINOLONE ACETONIDE [Suspect]
     Active Substance: TRIAMCINOLONE ACETONIDE
  6. ACETAMINOPHEN [Concomitant]
     Active Substance: ACETAMINOPHEN
     Indication: Rheumatoid arthritis
  7. ACETAMINOPHEN [Concomitant]
     Active Substance: ACETAMINOPHEN
  8. ACETAMINOPHEN [Concomitant]
     Active Substance: ACETAMINOPHEN
  9. ACETAMINOPHEN AND CODEINE [Concomitant]
     Active Substance: ACETAMINOPHEN\CODEINE PHOSPHATE
     Indication: Product used for unknown indication
  10. ACTEMRA [Concomitant]
     Active Substance: TOCILIZUMAB
     Indication: Rheumatoid arthritis
  11. ACTEMRA [Concomitant]
     Active Substance: TOCILIZUMAB
     Indication: Abdominal discomfort
     Route: 058
  12. ACTEMRA [Concomitant]
     Active Substance: TOCILIZUMAB
     Route: 040
  13. ACTEMRA [Concomitant]
     Active Substance: TOCILIZUMAB
     Route: 040
  14. ACTEMRA [Concomitant]
     Active Substance: TOCILIZUMAB
     Route: 048
  15. ACTEMRA [Concomitant]
     Active Substance: TOCILIZUMAB
  16. ACTEMRA [Concomitant]
     Active Substance: TOCILIZUMAB
     Route: 058
  17. ACTEMRA [Concomitant]
     Active Substance: TOCILIZUMAB
     Route: 058
  18. ACTEMRA [Concomitant]
     Active Substance: TOCILIZUMAB
  19. ACTEMRA [Concomitant]
     Active Substance: TOCILIZUMAB
     Route: 016
  20. ACTEMRA [Concomitant]
     Active Substance: TOCILIZUMAB
     Route: 058
  21. ACTEMRA [Concomitant]
     Active Substance: TOCILIZUMAB
     Route: 058
  22. ACTEMRA [Concomitant]
     Active Substance: TOCILIZUMAB
     Route: 058
  23. ACTEMRA [Concomitant]
     Active Substance: TOCILIZUMAB
     Route: 040
  24. ACTEMRA [Concomitant]
     Active Substance: TOCILIZUMAB
  25. ACTEMRA [Concomitant]
     Active Substance: TOCILIZUMAB
  26. ACTEMRA [Concomitant]
     Active Substance: TOCILIZUMAB
     Route: 040
  27. ACTEMRA [Concomitant]
     Active Substance: TOCILIZUMAB
     Route: 040
  28. ACTEMRA [Concomitant]
     Active Substance: TOCILIZUMAB
     Route: 058
  29. ACTEMRA [Concomitant]
     Active Substance: TOCILIZUMAB
     Route: 042
  30. ACTEMRA [Concomitant]
     Active Substance: TOCILIZUMAB
  31. ACTEMRA [Concomitant]
     Active Substance: TOCILIZUMAB
     Route: 042
  32. ACTEMRA [Concomitant]
     Active Substance: TOCILIZUMAB
     Route: 058
  33. ACTEMRA [Concomitant]
     Active Substance: TOCILIZUMAB
     Route: 058
  34. ACTEMRA [Concomitant]
     Active Substance: TOCILIZUMAB
     Route: 042
  35. ACTEMRA [Concomitant]
     Active Substance: TOCILIZUMAB
     Route: 042
  36. ACTEMRA [Concomitant]
     Active Substance: TOCILIZUMAB
     Route: 058
  37. ACTEMRA [Concomitant]
     Active Substance: TOCILIZUMAB
     Route: 042
  38. ADALIMUMAB [Concomitant]
     Active Substance: ADALIMUMAB
     Indication: Rheumatoid arthritis
     Route: 058
  39. ADALIMUMAB [Concomitant]
     Active Substance: ADALIMUMAB
     Route: 058
  40. AIMOVIG [Concomitant]
     Active Substance: ERENUMAB-AOOE
     Indication: Product used for unknown indication
  41. AIMOVIG [Concomitant]
     Active Substance: ERENUMAB-AOOE
  42. ALENDRONIC ACID [Concomitant]
     Active Substance: ALENDRONIC ACID
     Indication: Rheumatoid arthritis
  43. ALENDRONIC ACID [Concomitant]
     Active Substance: ALENDRONIC ACID
     Route: 016
  44. ALENDRONIC ACID [Concomitant]
     Active Substance: ALENDRONIC ACID
     Route: 048
  45. ALENDRONIC ACID [Concomitant]
     Active Substance: ALENDRONIC ACID
     Route: 005
  46. ALENDRONIC ACID [Concomitant]
     Active Substance: ALENDRONIC ACID
  47. ALENDRONIC ACID [Concomitant]
     Active Substance: ALENDRONIC ACID
  48. ALENDRONIC ACID [Concomitant]
     Active Substance: ALENDRONIC ACID
  49. ALENDRONIC ACID [Concomitant]
     Active Substance: ALENDRONIC ACID
  50. ALENDRONIC ACID [Concomitant]
     Active Substance: ALENDRONIC ACID
  51. ALENDRONIC ACID [Concomitant]
     Active Substance: ALENDRONIC ACID
     Route: 048
  52. LEFLUNOMIDE [Concomitant]
     Active Substance: LEFLUNOMIDE
     Indication: Rheumatoid arthritis
     Route: 048
  53. LEFLUNOMIDE [Concomitant]
     Active Substance: LEFLUNOMIDE
  54. LEFLUNOMIDE [Concomitant]
     Active Substance: LEFLUNOMIDE
  55. LEFLUNOMIDE [Concomitant]
     Active Substance: LEFLUNOMIDE
     Route: 048
  56. LEFLUNOMIDE [Concomitant]
     Active Substance: LEFLUNOMIDE
     Route: 048
  57. LEFLUNOMIDE [Concomitant]
     Active Substance: LEFLUNOMIDE
  58. LEFLUNOMIDE [Concomitant]
     Active Substance: LEFLUNOMIDE
     Route: 048
  59. LEFLUNOMIDE [Concomitant]
     Active Substance: LEFLUNOMIDE
  60. PREDNISONE [Concomitant]
     Active Substance: PREDNISONE
     Indication: Rheumatoid arthritis
     Route: 048
  61. PREDNISONE [Concomitant]
     Active Substance: PREDNISONE
  62. PREDNISONE [Concomitant]
     Active Substance: PREDNISONE
  63. PREDNISONE [Concomitant]
     Active Substance: PREDNISONE
     Route: 048
  64. PREDNISONE [Concomitant]
     Active Substance: PREDNISONE
  65. PREDNISONE [Concomitant]
     Active Substance: PREDNISONE
  66. PREDNISONE [Concomitant]
     Active Substance: PREDNISONE
     Route: 048
  67. PREDNISONE [Concomitant]
     Active Substance: PREDNISONE
     Route: 048
  68. PREDNISONE [Concomitant]
     Active Substance: PREDNISONE
     Route: 048
  69. PREDNISONE [Concomitant]
     Active Substance: PREDNISONE
     Route: 048
  70. PREDNISONE [Concomitant]
     Active Substance: PREDNISONE
     Route: 048
  71. PREDNISONE [Concomitant]
     Active Substance: PREDNISONE
  72. APREMILAST [Concomitant]
     Active Substance: APREMILAST
     Indication: Rheumatoid arthritis
  73. APREMILAST [Concomitant]
     Active Substance: APREMILAST
  74. APREMILAST [Concomitant]
     Active Substance: APREMILAST
  75. APREMILAST [Concomitant]
     Active Substance: APREMILAST
  76. ARAVA [Concomitant]
     Active Substance: LEFLUNOMIDE
     Indication: Rheumatoid arthritis
  77. ARAVA [Concomitant]
     Active Substance: LEFLUNOMIDE
     Route: 048
  78. ARAVA [Concomitant]
     Active Substance: LEFLUNOMIDE
     Route: 048
  79. ARAVA [Concomitant]
     Active Substance: LEFLUNOMIDE
  80. ARAVA [Concomitant]
     Active Substance: LEFLUNOMIDE
     Route: 048
  81. ATOMOXETINE [Concomitant]
     Active Substance: ATOMOXETINE
     Indication: Migraine
  82. AZATHIOPRINE SODIUM [Concomitant]
     Active Substance: AZATHIOPRINE SODIUM
     Indication: Product used for unknown indication
  83. AZATHIOPRINE SODIUM [Concomitant]
     Active Substance: AZATHIOPRINE SODIUM
     Route: 042
  84. BERINERT [Concomitant]
     Active Substance: HUMAN C1-ESTERASE INHIBITOR
     Indication: Product used for unknown indication
  85. BOTULINUM TOXIN TYPE A [Concomitant]
     Active Substance: BOTULINUM TOXIN TYPE A
     Indication: Product used for unknown indication
  86. BUTRANS [Concomitant]
     Active Substance: BUPRENORPHINE
     Indication: Product used for unknown indication
  87. CALCIUM ASCORBATE [Concomitant]
     Active Substance: CALCIUM ASCORBATE
     Indication: Product used for unknown indication
  88. CALCIUM ASCORBATE [Concomitant]
     Active Substance: CALCIUM ASCORBATE
  89. CALCIUM ASCORBATE [Concomitant]
     Active Substance: CALCIUM ASCORBATE
  90. CANDESARTAN [Concomitant]
     Active Substance: CANDESARTAN
     Indication: Migraine
     Route: 048
  91. CANDESARTAN [Concomitant]
     Active Substance: CANDESARTAN
  92. CELEBREX [Concomitant]
     Active Substance: CELECOXIB
     Indication: Product used for unknown indication
  93. CELEBREX [Concomitant]
     Active Substance: CELECOXIB
     Route: 048
  94. CELEBREX [Concomitant]
     Active Substance: CELECOXIB
  95. CELEBREX [Concomitant]
     Active Substance: CELECOXIB
     Route: 048
  96. CERTOLIZUMAB PEGOL [Concomitant]
     Active Substance: CERTOLIZUMAB PEGOL
     Indication: Product used for unknown indication
     Route: 058
  97. CERTOLIZUMAB PEGOL [Concomitant]
     Active Substance: CERTOLIZUMAB PEGOL
  98. CERTOLIZUMAB PEGOL [Concomitant]
     Active Substance: CERTOLIZUMAB PEGOL
     Route: 058
  99. CERTOLIZUMAB PEGOL [Concomitant]
     Active Substance: CERTOLIZUMAB PEGOL
     Route: 058
  100. CETIRIZINE HYDROCHLORIDE [Concomitant]
     Active Substance: CETIRIZINE HYDROCHLORIDE
     Indication: Product used for unknown indication
     Route: 048
  101. CETIRIZINE HYDROCHLORIDE [Concomitant]
     Active Substance: CETIRIZINE HYDROCHLORIDE
  102. CETIRIZINE HYDROCHLORIDE [Concomitant]
     Active Substance: CETIRIZINE HYDROCHLORIDE
  103. CETIRIZINE HYDROCHLORIDE [Concomitant]
     Active Substance: CETIRIZINE HYDROCHLORIDE
     Route: 048
  104. CETIRIZINE HYDROCHLORIDE [Concomitant]
     Active Substance: CETIRIZINE HYDROCHLORIDE
     Route: 048
  105. CETIRIZINE HYDROCHLORIDE [Concomitant]
     Active Substance: CETIRIZINE HYDROCHLORIDE
     Route: 016
  106. CETIRIZINE HYDROCHLORIDE [Concomitant]
     Active Substance: CETIRIZINE HYDROCHLORIDE
     Route: 048
  107. CETIRIZINE HYDROCHLORIDE [Concomitant]
     Active Substance: CETIRIZINE HYDROCHLORIDE
     Route: 016
  108. CETIRIZINE HYDROCHLORIDE [Concomitant]
     Active Substance: CETIRIZINE HYDROCHLORIDE
     Route: 016
  109. CETIRIZINE HYDROCHLORIDE [Concomitant]
     Active Substance: CETIRIZINE HYDROCHLORIDE
  110. CETIRIZINE HYDROCHLORIDE [Concomitant]
     Active Substance: CETIRIZINE HYDROCHLORIDE
  111. CETIRIZINE HYDROCHLORIDE [Concomitant]
     Active Substance: CETIRIZINE HYDROCHLORIDE
  112. CETIRIZINE HYDROCHLORIDE [Concomitant]
     Active Substance: CETIRIZINE HYDROCHLORIDE
  113. CETIRIZINE HYDROCHLORIDE [Concomitant]
     Active Substance: CETIRIZINE HYDROCHLORIDE
  114. CETIRIZINE HYDROCHLORIDE [Concomitant]
     Active Substance: CETIRIZINE HYDROCHLORIDE
  115. CETIRIZINE HYDROCHLORIDE [Concomitant]
     Active Substance: CETIRIZINE HYDROCHLORIDE
  116. CETIRIZINE HYDROCHLORIDE [Concomitant]
     Active Substance: CETIRIZINE HYDROCHLORIDE
     Route: 048
  117. CHOLECALCIFEROL [Concomitant]
     Active Substance: CHOLECALCIFEROL
     Indication: Product used for unknown indication
  118. CIMZIA [Concomitant]
     Active Substance: CERTOLIZUMAB PEGOL
     Indication: Rheumatoid arthritis
     Route: 058
  119. CIMZIA [Concomitant]
     Active Substance: CERTOLIZUMAB PEGOL
     Indication: Psoriasis
  120. CIMZIA [Concomitant]
     Active Substance: CERTOLIZUMAB PEGOL
     Route: 058
  121. CIMZIA [Concomitant]
     Active Substance: CERTOLIZUMAB PEGOL
  122. CIMZIA [Concomitant]
     Active Substance: CERTOLIZUMAB PEGOL
     Route: 058
  123. CIMZIA [Concomitant]
     Active Substance: CERTOLIZUMAB PEGOL
     Route: 005
  124. CIMZIA [Concomitant]
     Active Substance: CERTOLIZUMAB PEGOL
  125. CIMZIA [Concomitant]
     Active Substance: CERTOLIZUMAB PEGOL
     Route: 058
  126. CORTISONE ACETATE [Concomitant]
     Active Substance: CORTISONE ACETATE
     Indication: Rheumatoid arthritis
  127. CORTISONE ACETATE [Concomitant]
     Active Substance: CORTISONE ACETATE
     Route: 048
  128. CORTISONE ACETATE [Concomitant]
     Active Substance: CORTISONE ACETATE
  129. CORTISONE ACETATE [Concomitant]
     Active Substance: CORTISONE ACETATE
     Route: 048
  130. COSENTYX [Concomitant]
     Active Substance: SECUKINUMAB
     Indication: Rheumatoid arthritis
  131. COSENTYX [Concomitant]
     Active Substance: SECUKINUMAB
     Indication: Psoriatic arthropathy
  132. COSENTYX [Concomitant]
     Active Substance: SECUKINUMAB
     Route: 005
  133. COSENTYX [Concomitant]
     Active Substance: SECUKINUMAB
     Dosage: PREFILLED SYRINGE
  134. DESOXIMETASONE [Concomitant]
     Active Substance: DESOXIMETASONE
     Indication: Rheumatoid arthritis
  135. DESOXIMETASONE [Concomitant]
     Active Substance: DESOXIMETASONE
     Route: 048
  136. DESOXIMETASONE [Concomitant]
     Active Substance: DESOXIMETASONE
     Route: 058
  137. DESOXIMETASONE [Concomitant]
     Active Substance: DESOXIMETASONE
  138. DESOXIMETASONE [Concomitant]
     Active Substance: DESOXIMETASONE
  139. DESOXIMETASONE [Concomitant]
     Active Substance: DESOXIMETASONE
     Route: 048
  140. DESOXIMETASONE [Concomitant]
     Active Substance: DESOXIMETASONE
     Route: 058
  141. DESOXIMETASONE [Concomitant]
     Active Substance: DESOXIMETASONE
     Route: 003
  142. DESOXIMETASONE [Concomitant]
     Active Substance: DESOXIMETASONE
     Route: 003
  143. DESOXIMETASONE [Concomitant]
     Active Substance: DESOXIMETASONE
     Route: 048
  144. DESOXIMETASONE [Concomitant]
     Active Substance: DESOXIMETASONE
     Route: 048
  145. DESOXIMETASONE [Concomitant]
     Active Substance: DESOXIMETASONE
     Route: 058
  146. DESOXIMETASONE [Concomitant]
     Active Substance: DESOXIMETASONE
     Route: 048
  147. DESOXIMETASONE [Concomitant]
     Active Substance: DESOXIMETASONE
     Route: 048
  148. DESOXIMETASONE [Concomitant]
     Active Substance: DESOXIMETASONE
     Route: 048
  149. DESOXIMETASONE [Concomitant]
     Active Substance: DESOXIMETASONE
     Route: 048
  150. DESOXIMETASONE [Concomitant]
     Active Substance: DESOXIMETASONE
     Route: 048
  151. DESOXIMETASONE [Concomitant]
     Active Substance: DESOXIMETASONE
     Route: 048
  152. DESOXIMETASONE [Concomitant]
     Active Substance: DESOXIMETASONE
     Route: 058
  153. DESOXIMETASONE [Concomitant]
     Active Substance: DESOXIMETASONE
  154. DESOXIMETASONE [Concomitant]
     Active Substance: DESOXIMETASONE
  155. DESOXIMETASONE [Concomitant]
     Active Substance: DESOXIMETASONE
     Route: 058
  156. DESOXIMETASONE [Concomitant]
     Active Substance: DESOXIMETASONE
  157. DESOXIMETASONE [Concomitant]
     Active Substance: DESOXIMETASONE
     Route: 048
  158. DICLOFENAC DIETHYLAMINE [Concomitant]
     Active Substance: DICLOFENAC DIETHYLAMINE
     Indication: Product used for unknown indication
  159. DICLOFENAC SODIUM [Concomitant]
     Active Substance: DICLOFENAC SODIUM
     Indication: Product used for unknown indication
     Route: 058
  160. DICLOFENAC SODIUM [Concomitant]
     Active Substance: DICLOFENAC SODIUM
  161. DICLOFENAC SODIUM [Concomitant]
     Active Substance: DICLOFENAC SODIUM
  162. DOMPERIDONE MALEATE [Concomitant]
     Active Substance: DOMPERIDONE MALEATE
     Indication: Product used for unknown indication
  163. ENBREL [Concomitant]
     Active Substance: ETANERCEPT
     Indication: Rheumatoid arthritis
     Route: 058
  164. ENBREL [Concomitant]
     Active Substance: ETANERCEPT
  165. ENBREL [Concomitant]
     Active Substance: ETANERCEPT
     Route: 058
  166. ENBREL [Concomitant]
     Active Substance: ETANERCEPT
     Route: 058
  167. ENBREL [Concomitant]
     Active Substance: ETANERCEPT
     Route: 058
  168. ENBREL [Concomitant]
     Active Substance: ETANERCEPT
  169. ENBREL [Concomitant]
     Active Substance: ETANERCEPT
  170. ERELZI [Concomitant]
     Active Substance: ETANERCEPT-SZZS
     Indication: Rheumatoid arthritis
     Route: 058
  171. ERELZI [Concomitant]
     Active Substance: ETANERCEPT-SZZS
  172. ERELZI [Concomitant]
     Active Substance: ETANERCEPT-SZZS
     Route: 058
  173. FLUMETHASONE [Concomitant]
     Active Substance: FLUMETHASONE
     Indication: Product used for unknown indication
  174. FLUMETHASONE PIVALATE [Concomitant]
     Active Substance: FLUMETHASONE PIVALATE
     Indication: Product used for unknown indication
     Route: 058
  175. FLUMETHASONE PIVALATE [Concomitant]
     Active Substance: FLUMETHASONE PIVALATE
  176. FLUMETHASONE PIVALATE [Concomitant]
     Active Substance: FLUMETHASONE PIVALATE
     Route: 003
  177. FOSAMAX [Concomitant]
     Active Substance: ALENDRONATE SODIUM
     Indication: Rheumatoid arthritis
     Route: 016
  178. FOSAMAX [Concomitant]
     Active Substance: ALENDRONATE SODIUM
     Route: 048
  179. FOSAMAX [Concomitant]
     Active Substance: ALENDRONATE SODIUM
  180. FOSAMAX [Concomitant]
     Active Substance: ALENDRONATE SODIUM
     Route: 058
  181. FOSAMAX [Concomitant]
     Active Substance: ALENDRONATE SODIUM
     Route: 005
  182. GOLD [Concomitant]
     Active Substance: GOLD
     Indication: Product used for unknown indication
  183. GOLD SODIUM THIOMALATE [Concomitant]
     Active Substance: GOLD SODIUM THIOMALATE
     Indication: Product used for unknown indication
     Route: 030
  184. GOLD SODIUM THIOMALATE [Concomitant]
     Active Substance: GOLD SODIUM THIOMALATE
     Route: 030
  185. GOLIMUMAB [Concomitant]
     Active Substance: GOLIMUMAB
     Indication: Rheumatoid arthritis
     Route: 058
  186. GOLIMUMAB [Concomitant]
     Active Substance: GOLIMUMAB
     Indication: Prostatic specific antigen
  187. HUMIRA [Concomitant]
     Active Substance: ADALIMUMAB
     Indication: Rheumatoid arthritis
     Route: 058
  188. HUMIRA [Concomitant]
     Active Substance: ADALIMUMAB
     Route: 058
  189. HUMIRA [Concomitant]
     Active Substance: ADALIMUMAB
     Route: 058
  190. HUMIRA [Concomitant]
     Active Substance: ADALIMUMAB
  191. HUMIRA [Concomitant]
     Active Substance: ADALIMUMAB
  192. HUMIRA [Concomitant]
     Active Substance: ADALIMUMAB
     Route: 058
  193. HYDROCORTISONE [Concomitant]
     Active Substance: HYDROCORTISONE
     Indication: Product used for unknown indication
  194. HYDROXYCHLOROQUINE [Concomitant]
     Active Substance: HYDROXYCHLOROQUINE
     Indication: Rheumatoid arthritis
     Route: 048
  195. HYDROXYCHLOROQUINE [Concomitant]
     Active Substance: HYDROXYCHLOROQUINE
  196. HYDROXYCHLOROQUINE [Concomitant]
     Active Substance: HYDROXYCHLOROQUINE
  197. HYDROXYCHLOROQUINE [Concomitant]
     Active Substance: HYDROXYCHLOROQUINE
     Route: 048
  198. HYDROXYCHLOROQUINE [Concomitant]
     Active Substance: HYDROXYCHLOROQUINE
     Route: 058
  199. HYDROXYCHLOROQUINE [Concomitant]
     Active Substance: HYDROXYCHLOROQUINE
     Route: 016
  200. HYDROXYCHLOROQUINE [Concomitant]
     Active Substance: HYDROXYCHLOROQUINE
  201. HYDROXYCHLOROQUINE [Concomitant]
     Active Substance: HYDROXYCHLOROQUINE
     Route: 048
  202. HYDROXYCHLOROQUINE [Concomitant]
     Active Substance: HYDROXYCHLOROQUINE
     Route: 058
  203. HYDROXYCHLOROQUINE SULFATE [Concomitant]
     Active Substance: HYDROXYCHLOROQUINE SULFATE
     Indication: Rheumatoid arthritis
     Route: 048
  204. HYDROXYCHLOROQUINE SULFATE [Concomitant]
     Active Substance: HYDROXYCHLOROQUINE SULFATE
     Route: 048
  205. HYDROXYCHLOROQUINE SULFATE [Concomitant]
     Active Substance: HYDROXYCHLOROQUINE SULFATE
  206. HYDROXYCHLOROQUINE SULFATE [Concomitant]
     Active Substance: HYDROXYCHLOROQUINE SULFATE
  207. HYDROXYCHLOROQUINE SULFATE [Concomitant]
     Active Substance: HYDROXYCHLOROQUINE SULFATE
  208. HYDROXYCHLOROQUINE SULFATE [Concomitant]
     Active Substance: HYDROXYCHLOROQUINE SULFATE
  209. HYDROXYCHLOROQUINE SULFATE [Concomitant]
     Active Substance: HYDROXYCHLOROQUINE SULFATE
  210. HYDROXYCHLOROQUINE SULFATE [Concomitant]
     Active Substance: HYDROXYCHLOROQUINE SULFATE
  211. HYDROXYCHLOROQUINE SULFATE [Concomitant]
     Active Substance: HYDROXYCHLOROQUINE SULFATE
  212. HYDROXYCHLOROQUINE SULFATE [Concomitant]
     Active Substance: HYDROXYCHLOROQUINE SULFATE
     Route: 005
  213. HYDROXYCHLOROQUINE SULFATE [Concomitant]
     Active Substance: HYDROXYCHLOROQUINE SULFATE
     Route: 048
  214. INFLIXIMAB [Concomitant]
     Active Substance: INFLIXIMAB
     Indication: Rheumatoid arthritis
     Route: 040
  215. INFLIXIMAB [Concomitant]
     Active Substance: INFLIXIMAB
     Route: 040
  216. INFLIXIMAB [Concomitant]
     Active Substance: INFLIXIMAB
     Route: 040
  217. INFLIXIMAB [Concomitant]
     Active Substance: INFLIXIMAB
     Route: 042
  218. INFLIXIMAB [Concomitant]
     Active Substance: INFLIXIMAB
     Route: 042
  219. INFLIXIMAB [Concomitant]
     Active Substance: INFLIXIMAB
     Route: 042
  220. INFLIXIMAB [Concomitant]
     Active Substance: INFLIXIMAB
     Route: 042
  221. INFLIXIMAB [Concomitant]
     Active Substance: INFLIXIMAB
  222. LAMICTAL [Concomitant]
     Active Substance: LAMOTRIGINE
     Indication: Product used for unknown indication
     Route: 048
  223. LAMICTAL [Concomitant]
     Active Substance: LAMOTRIGINE
     Route: 048
  224. LEFLUNOMIDE [Concomitant]
     Active Substance: LEFLUNOMIDE
     Indication: Rheumatoid arthritis
     Route: 048
  225. LEFLUNOMIDE [Concomitant]
     Active Substance: LEFLUNOMIDE
  226. LEFLUNOMIDE [Concomitant]
     Active Substance: LEFLUNOMIDE
     Route: 048
  227. LEFLUNOMIDE [Concomitant]
     Active Substance: LEFLUNOMIDE
  228. LEFLUNOMIDE [Concomitant]
     Active Substance: LEFLUNOMIDE
     Route: 048
  229. LEFLUNOMIDE [Concomitant]
     Active Substance: LEFLUNOMIDE
  230. LEFLUNOMIDE [Concomitant]
     Active Substance: LEFLUNOMIDE
     Route: 048
  231. LEFLUNOMIDE [Concomitant]
     Active Substance: LEFLUNOMIDE
     Route: 048
  232. METFORMIN HYDROCHLORIDE [Concomitant]
     Active Substance: METFORMIN HYDROCHLORIDE
     Indication: Product used for unknown indication
     Route: 040
  233. METHOTREXATE [Concomitant]
     Active Substance: METHOTREXATE
     Indication: Rheumatoid arthritis
     Route: 048
  234. METHOTREXATE [Concomitant]
     Active Substance: METHOTREXATE
     Route: 048
  235. METHOTREXATE [Concomitant]
     Active Substance: METHOTREXATE
  236. METHOTREXATE [Concomitant]
     Active Substance: METHOTREXATE
  237. METHOTREXATE [Concomitant]
     Active Substance: METHOTREXATE
  238. METHOTREXATE [Concomitant]
     Active Substance: METHOTREXATE
     Route: 058
  239. METHOTREXATE [Concomitant]
     Active Substance: METHOTREXATE
     Route: 013
  240. METHOTREXATE [Concomitant]
     Active Substance: METHOTREXATE
     Route: 048
  241. METHOTREXATE [Concomitant]
     Active Substance: METHOTREXATE
     Route: 048
  242. METHOTREXATE [Concomitant]
     Active Substance: METHOTREXATE
     Route: 048
  243. METHOTREXATE [Concomitant]
     Active Substance: METHOTREXATE
     Route: 048
  244. METHOTREXATE [Concomitant]
     Active Substance: METHOTREXATE
     Route: 048
  245. METHOTREXATE [Concomitant]
     Active Substance: METHOTREXATE
     Route: 013
  246. METHOTREXATE [Concomitant]
     Active Substance: METHOTREXATE
     Route: 048
  247. METHOTREXATE [Concomitant]
     Active Substance: METHOTREXATE
     Route: 048
  248. METHOTREXATE [Concomitant]
     Active Substance: METHOTREXATE
     Route: 058
  249. METHOTREXATE [Concomitant]
     Active Substance: METHOTREXATE
     Route: 048
  250. METHOTREXATE [Concomitant]
     Active Substance: METHOTREXATE
  251. METHOTREXATE [Concomitant]
     Active Substance: METHOTREXATE
     Route: 016
  252. METHOTREXATE [Concomitant]
     Active Substance: METHOTREXATE
     Route: 048
  253. METHYLPREDNISOLONE ACETATE [Concomitant]
     Active Substance: METHYLPREDNISOLONE ACETATE
     Indication: Product used for unknown indication
  254. METHYLPREDNISOLONE SODIUM SUCCINATE [Concomitant]
     Active Substance: METHYLPREDNISOLONE SODIUM SUCCINATE
     Indication: Product used for unknown indication
  255. MINOCYCLINE [Concomitant]
     Active Substance: MINOCYCLINE HYDROCHLORIDE
     Indication: Rheumatoid arthritis
  256. MINOCYCLINE [Concomitant]
     Active Substance: MINOCYCLINE HYDROCHLORIDE
  257. MINOCYCLINE HYDROCHLORIDE [Concomitant]
     Active Substance: MINOCYCLINE HYDROCHLORIDE
     Indication: Rheumatoid arthritis
     Route: 030
  258. MINOCYCLINE HYDROCHLORIDE [Concomitant]
     Active Substance: MINOCYCLINE HYDROCHLORIDE
  259. MINOCYCLINE HYDROCHLORIDE [Concomitant]
     Active Substance: MINOCYCLINE HYDROCHLORIDE
  260. MINOCYCLINE HYDROCHLORIDE [Concomitant]
     Active Substance: MINOCYCLINE HYDROCHLORIDE
     Dosage: SUBDERMAL
  261. MINOCYCLINE HYDROCHLORIDE [Concomitant]
     Active Substance: MINOCYCLINE HYDROCHLORIDE
  262. MINOCYCLINE HYDROCHLORIDE [Concomitant]
     Active Substance: MINOCYCLINE HYDROCHLORIDE
     Dosage: SUBDERMAL
  263. MINOCYCLINE HYDROCHLORIDE [Concomitant]
     Active Substance: MINOCYCLINE HYDROCHLORIDE
     Dosage: SUBDERMAL
  264. MINOCYCLINE HYDROCHLORIDE [Concomitant]
     Active Substance: MINOCYCLINE HYDROCHLORIDE
  265. MYRBETRIQ [Concomitant]
     Active Substance: MIRABEGRON
     Indication: Product used for unknown indication
  266. MYRBETRIQ [Concomitant]
     Active Substance: MIRABEGRON
  267. MYRBETRIQ [Concomitant]
     Active Substance: MIRABEGRON
  268. MYRBETRIQ [Concomitant]
     Active Substance: MIRABEGRON
  269. MYRBETRIQ [Concomitant]
     Active Substance: MIRABEGRON
  270. NAPROXEN [Concomitant]
     Active Substance: NAPROXEN
     Indication: Product used for unknown indication
  271. NAPROXEN [Concomitant]
     Active Substance: NAPROXEN
  272. NAPROXEN SODIUM [Concomitant]
     Active Substance: NAPROXEN SODIUM
     Indication: Rheumatoid arthritis
  273. NUCALA [Concomitant]
     Active Substance: MEPOLIZUMAB
     Indication: Product used for unknown indication
  274. OXYCODONE HYDROCHLORIDE [Concomitant]
     Active Substance: OXYCODONE HYDROCHLORIDE
     Indication: Product used for unknown indication
  275. OXYCODONE TEREPHTHALATE [Concomitant]
     Active Substance: OXYCODONE TEREPHTHALATE
     Indication: Product used for unknown indication
  276. PHENYLEPHRINE HYDROCHLORIDE [Concomitant]
     Active Substance: PHENYLEPHRINE HYDROCHLORIDE
     Indication: Rheumatoid arthritis
  277. PHTHALYLSULFATHIAZOLE [Concomitant]
     Active Substance: PHTHALYLSULFATHIAZOLE
     Indication: Rheumatoid arthritis
  278. PHTHALYLSULFATHIAZOLE [Concomitant]
     Active Substance: PHTHALYLSULFATHIAZOLE
     Route: 048
  279. PHTHALYLSULFATHIAZOLE [Concomitant]
     Active Substance: PHTHALYLSULFATHIAZOLE
  280. PHTHALYLSULFATHIAZOLE [Concomitant]
     Active Substance: PHTHALYLSULFATHIAZOLE
     Route: 040
  281. PHTHALYLSULFATHIAZOLE [Concomitant]
     Active Substance: PHTHALYLSULFATHIAZOLE
     Route: 058
  282. PHTHALYLSULFATHIAZOLE [Concomitant]
     Active Substance: PHTHALYLSULFATHIAZOLE
     Route: 048
  283. PHTHALYLSULFATHIAZOLE [Concomitant]
     Active Substance: PHTHALYLSULFATHIAZOLE
     Route: 048
  284. PHTHALYLSULFATHIAZOLE [Concomitant]
     Active Substance: PHTHALYLSULFATHIAZOLE
     Route: 042
  285. PHTHALYLSULFATHIAZOLE [Concomitant]
     Active Substance: PHTHALYLSULFATHIAZOLE
     Route: 058
  286. PHTHALYLSULFATHIAZOLE [Concomitant]
     Active Substance: PHTHALYLSULFATHIAZOLE
     Route: 042
  287. PHTHALYLSULFATHIAZOLE [Concomitant]
     Active Substance: PHTHALYLSULFATHIAZOLE
     Route: 048
  288. PHTHALYLSULFATHIAZOLE [Concomitant]
     Active Substance: PHTHALYLSULFATHIAZOLE
  289. PHTHALYLSULFATHIAZOLE [Concomitant]
     Active Substance: PHTHALYLSULFATHIAZOLE
  290. PHTHALYLSULFATHIAZOLE [Concomitant]
     Active Substance: PHTHALYLSULFATHIAZOLE
  291. PHTHALYLSULFATHIAZOLE [Concomitant]
     Active Substance: PHTHALYLSULFATHIAZOLE
     Route: 048
  292. PHTHALYLSULFATHIAZOLE [Concomitant]
     Active Substance: PHTHALYLSULFATHIAZOLE
     Route: 058
  293. PREDNISONE [Concomitant]
     Active Substance: PREDNISONE
     Indication: Rheumatoid arthritis
  294. PREDNISONE [Concomitant]
     Active Substance: PREDNISONE
     Route: 048
  295. PREDNISONE [Concomitant]
     Active Substance: PREDNISONE
     Route: 048
  296. PREDNISONE [Concomitant]
     Active Substance: PREDNISONE
     Route: 048
  297. PREDNISONE [Concomitant]
     Active Substance: PREDNISONE
     Route: 048
  298. PREDNISONE [Concomitant]
     Active Substance: PREDNISONE
  299. PREDNISONE [Concomitant]
     Active Substance: PREDNISONE
  300. PREDNISONE [Concomitant]
     Active Substance: PREDNISONE
     Route: 048
  301. PREDNISONE [Concomitant]
     Active Substance: PREDNISONE
  302. PREDNISONE [Concomitant]
     Active Substance: PREDNISONE
  303. PSEUDOEPHEDRINE HYDROCHLORIDE [Concomitant]
     Active Substance: PSEUDOEPHEDRINE HYDROCHLORIDE
     Indication: Rheumatoid arthritis
  304. PSEUDOEPHEDRINE HYDROCHLORIDE [Concomitant]
     Active Substance: PSEUDOEPHEDRINE HYDROCHLORIDE
  305. PSEUDOEPHEDRINE HYDROCHLORIDE [Concomitant]
     Active Substance: PSEUDOEPHEDRINE HYDROCHLORIDE
  306. PSEUDOEPHEDRINE HYDROCHLORIDE [Concomitant]
     Active Substance: PSEUDOEPHEDRINE HYDROCHLORIDE
  307. PSEUDOEPHEDRINE HYDROCHLORIDE [Concomitant]
     Active Substance: PSEUDOEPHEDRINE HYDROCHLORIDE
  308. PSEUDOEPHEDRINE HYDROCHLORIDE [Concomitant]
     Active Substance: PSEUDOEPHEDRINE HYDROCHLORIDE
  309. PSEUDOEPHEDRINE HYDROCHLORIDE [Concomitant]
     Active Substance: PSEUDOEPHEDRINE HYDROCHLORIDE
  310. RAMIPRIL [Concomitant]
     Active Substance: RAMIPRIL
     Indication: Rheumatoid arthritis
     Route: 040
  311. RAMIPRIL [Concomitant]
     Active Substance: RAMIPRIL
  312. RAMIPRIL [Concomitant]
     Active Substance: RAMIPRIL
     Route: 016
  313. RAMIPRIL [Concomitant]
     Active Substance: RAMIPRIL
     Route: 042
  314. RANITIDINE [Concomitant]
     Active Substance: RANITIDINE
     Indication: Product used for unknown indication
  315. CETIRIZINE HYDROCHLORIDE\PSEUDOEPHEDRINE HYDROCHLORIDE [Concomitant]
     Active Substance: CETIRIZINE HYDROCHLORIDE\PSEUDOEPHEDRINE HYDROCHLORIDE
     Indication: Rheumatoid arthritis
  316. CETIRIZINE HYDROCHLORIDE\PSEUDOEPHEDRINE HYDROCHLORIDE [Concomitant]
     Active Substance: CETIRIZINE HYDROCHLORIDE\PSEUDOEPHEDRINE HYDROCHLORIDE
  317. CETIRIZINE HYDROCHLORIDE\PSEUDOEPHEDRINE HYDROCHLORIDE [Concomitant]
     Active Substance: CETIRIZINE HYDROCHLORIDE\PSEUDOEPHEDRINE HYDROCHLORIDE
     Dosage: EXTENDED RELEASE
  318. CETIRIZINE HYDROCHLORIDE\PSEUDOEPHEDRINE HYDROCHLORIDE [Concomitant]
     Active Substance: CETIRIZINE HYDROCHLORIDE\PSEUDOEPHEDRINE HYDROCHLORIDE
     Route: 040
  319. CETIRIZINE HYDROCHLORIDE\PSEUDOEPHEDRINE HYDROCHLORIDE [Concomitant]
     Active Substance: CETIRIZINE HYDROCHLORIDE\PSEUDOEPHEDRINE HYDROCHLORIDE
  320. CETIRIZINE HYDROCHLORIDE\PSEUDOEPHEDRINE HYDROCHLORIDE [Concomitant]
     Active Substance: CETIRIZINE HYDROCHLORIDE\PSEUDOEPHEDRINE HYDROCHLORIDE
  321. CETIRIZINE HYDROCHLORIDE\PSEUDOEPHEDRINE HYDROCHLORIDE [Concomitant]
     Active Substance: CETIRIZINE HYDROCHLORIDE\PSEUDOEPHEDRINE HYDROCHLORIDE
     Route: 040
  322. CETIRIZINE HYDROCHLORIDE\PSEUDOEPHEDRINE HYDROCHLORIDE [Concomitant]
     Active Substance: CETIRIZINE HYDROCHLORIDE\PSEUDOEPHEDRINE HYDROCHLORIDE
     Route: 040
  323. REMICADE [Concomitant]
     Active Substance: INFLIXIMAB
     Indication: Rheumatoid arthritis
     Route: 040
  324. REMICADE [Concomitant]
     Active Substance: INFLIXIMAB
     Route: 058
  325. REMICADE [Concomitant]
     Active Substance: INFLIXIMAB
     Route: 040
  326. REMICADE [Concomitant]
     Active Substance: INFLIXIMAB
     Route: 040
  327. REMICADE [Concomitant]
     Active Substance: INFLIXIMAB
     Route: 040
  328. REMICADE [Concomitant]
     Active Substance: INFLIXIMAB
  329. REMICADE [Concomitant]
     Active Substance: INFLIXIMAB
     Route: 040
  330. REMICADE [Concomitant]
     Active Substance: INFLIXIMAB
     Route: 042
  331. REMICADE [Concomitant]
     Active Substance: INFLIXIMAB
     Route: 042
  332. REMICADE [Concomitant]
     Active Substance: INFLIXIMAB
     Route: 042
  333. REMICADE [Concomitant]
     Active Substance: INFLIXIMAB
     Route: 058
  334. REMICADE [Concomitant]
     Active Substance: INFLIXIMAB
     Route: 042
  335. REMICADE [Concomitant]
     Active Substance: INFLIXIMAB
     Dosage: POWDER FOR SOLUTION INTRAVENOUS
     Route: 042
  336. RITUXIMAB [Concomitant]
     Active Substance: RITUXIMAB
     Indication: Rheumatoid arthritis
     Route: 058
  337. RITUXIMAB [Concomitant]
     Active Substance: RITUXIMAB
     Route: 040
  338. RITUXIMAB [Concomitant]
     Active Substance: RITUXIMAB
  339. RITUXIMAB [Concomitant]
     Active Substance: RITUXIMAB
  340. RITUXIMAB [Concomitant]
     Active Substance: RITUXIMAB
     Route: 043
  341. RITUXIMAB [Concomitant]
     Active Substance: RITUXIMAB
     Route: 058
  342. RITUXIMAB [Concomitant]
     Active Substance: RITUXIMAB
     Route: 040
  343. RITUXIMAB [Concomitant]
     Active Substance: RITUXIMAB
  344. RITUXIMAB [Concomitant]
     Active Substance: RITUXIMAB
  345. RITUXIMAB [Concomitant]
     Active Substance: RITUXIMAB
     Route: 016
  346. RITUXIMAB [Concomitant]
     Active Substance: RITUXIMAB
     Route: 042
  347. RITUXIMAB [Concomitant]
     Active Substance: RITUXIMAB
  348. RITUXIMAB [Concomitant]
     Active Substance: RITUXIMAB
  349. RITUXIMAB [Concomitant]
     Active Substance: RITUXIMAB
  350. SULFASALAZINE [Concomitant]
     Active Substance: SULFASALAZINE
     Indication: Rheumatoid arthritis
  351. SULFASALAZINE [Concomitant]
     Active Substance: SULFASALAZINE
     Route: 048
  352. SULFASALAZINE [Concomitant]
     Active Substance: SULFASALAZINE
     Route: 048
  353. SULFASALAZINE [Concomitant]
     Active Substance: SULFASALAZINE
     Route: 048
  354. SULFASALAZINE [Concomitant]
     Active Substance: SULFASALAZINE
     Route: 048
  355. SULFASALAZINE [Concomitant]
     Active Substance: SULFASALAZINE
  356. SULFASALAZINE [Concomitant]
     Active Substance: SULFASALAZINE
     Route: 058
  357. SULFASALAZINE [Concomitant]
     Active Substance: SULFASALAZINE
     Route: 048
  358. SULFASALAZINE [Concomitant]
     Active Substance: SULFASALAZINE
     Route: 048
  359. SULFASALAZINE [Concomitant]
     Active Substance: SULFASALAZINE
     Route: 058
  360. SULFASALAZINE [Concomitant]
     Active Substance: SULFASALAZINE
     Route: 048
  361. SULFASALAZINE [Concomitant]
     Active Substance: SULFASALAZINE
  362. SULFASALAZINE [Concomitant]
     Active Substance: SULFASALAZINE
     Route: 058
  363. SIMPONI [Concomitant]
     Active Substance: GOLIMUMAB
     Indication: Rheumatoid arthritis
     Route: 058
  364. SIMPONI [Concomitant]
     Active Substance: GOLIMUMAB
     Route: 058
  365. SIMPONI [Concomitant]
     Active Substance: GOLIMUMAB
     Route: 058
  366. SIMPONI [Concomitant]
     Active Substance: GOLIMUMAB
  367. SIMPONI [Concomitant]
     Active Substance: GOLIMUMAB
  368. SIRUKUMAB [Concomitant]
     Active Substance: SIRUKUMAB
     Indication: Product used for unknown indication
  369. GOLD SODIUM THIOMALATE [Concomitant]
     Active Substance: GOLD SODIUM THIOMALATE
     Indication: Product used for unknown indication
     Route: 048
  370. GOLD SODIUM THIOMALATE [Concomitant]
     Active Substance: GOLD SODIUM THIOMALATE
  371. GOLD SODIUM THIOMALATE [Concomitant]
     Active Substance: GOLD SODIUM THIOMALATE
  372. STELARA [Concomitant]
     Active Substance: USTEKINUMAB
     Indication: Rheumatoid arthritis
  373. STELARA [Concomitant]
     Active Substance: USTEKINUMAB
     Route: 058
  374. SULFASALAZINE [Concomitant]
     Active Substance: SULFASALAZINE
     Indication: Rheumatoid arthritis
     Route: 048
  375. SULFASALAZINE [Concomitant]
     Active Substance: SULFASALAZINE
     Route: 048
  376. SULFASALAZINE [Concomitant]
     Active Substance: SULFASALAZINE
  377. SULFASALAZINE [Concomitant]
     Active Substance: SULFASALAZINE
     Route: 058
  378. SULFASALAZINE [Concomitant]
     Active Substance: SULFASALAZINE
     Route: 048
  379. SULFASALAZINE [Concomitant]
     Active Substance: SULFASALAZINE
  380. SULFASALAZINE [Concomitant]
     Active Substance: SULFASALAZINE
  381. SULFASALAZINE [Concomitant]
     Active Substance: SULFASALAZINE
  382. SULFASALAZINE [Concomitant]
     Active Substance: SULFASALAZINE
     Route: 058
  383. SULFASALAZINE [Concomitant]
     Active Substance: SULFASALAZINE
     Route: 058
  384. SULFASALAZINE [Concomitant]
     Active Substance: SULFASALAZINE
     Route: 016
  385. SULFASALAZINE [Concomitant]
     Active Substance: SULFASALAZINE
     Route: 058
  386. SULFASALAZINE [Concomitant]
     Active Substance: SULFASALAZINE
     Route: 048
  387. SULFASALAZINE [Concomitant]
     Active Substance: SULFASALAZINE
     Route: 048
  388. SULFASALAZINE [Concomitant]
     Active Substance: SULFASALAZINE
     Route: 048
  389. SULFASALAZINE [Concomitant]
     Active Substance: SULFASALAZINE
  390. SULFASALAZINE [Concomitant]
     Active Substance: SULFASALAZINE
     Route: 058
  391. SULFASALAZINE [Concomitant]
     Active Substance: SULFASALAZINE
     Route: 048
  392. SULFASALAZINE [Concomitant]
     Active Substance: SULFASALAZINE
     Route: 048
  393. SULFASALAZINE [Concomitant]
     Active Substance: SULFASALAZINE
  394. SULFASALAZINE [Concomitant]
     Active Substance: SULFASALAZINE
     Route: 058
  395. SULFASALAZINE [Concomitant]
     Active Substance: SULFASALAZINE
  396. SULFASALAZINE [Concomitant]
     Active Substance: SULFASALAZINE
  397. SULFASALAZINE [Concomitant]
     Active Substance: SULFASALAZINE
     Route: 048
  398. SULFASALAZINE [Concomitant]
     Active Substance: SULFASALAZINE
     Route: 058
  399. SULFASALAZINE [Concomitant]
     Active Substance: SULFASALAZINE
     Route: 048
  400. SULFASALAZINE [Concomitant]
     Active Substance: SULFASALAZINE
     Route: 058
  401. SULFASALAZINE [Concomitant]
     Active Substance: SULFASALAZINE
     Route: 048
  402. SULFASALAZINE [Concomitant]
     Active Substance: SULFASALAZINE
     Route: 048
  403. SULFASALAZINE [Concomitant]
     Active Substance: SULFASALAZINE
     Route: 048
  404. SULFASALAZINE [Concomitant]
     Active Substance: SULFASALAZINE
     Route: 048
  405. TOCILIZUMAB [Concomitant]
     Active Substance: TOCILIZUMAB
     Indication: Rheumatoid arthritis
     Route: 040
  406. TOCILIZUMAB [Concomitant]
     Active Substance: TOCILIZUMAB
  407. TOCILIZUMAB [Concomitant]
     Active Substance: TOCILIZUMAB
     Route: 040
  408. TOCILIZUMAB [Concomitant]
     Active Substance: TOCILIZUMAB
     Route: 042
  409. TOCILIZUMAB [Concomitant]
     Active Substance: TOCILIZUMAB
  410. TOCILIZUMAB [Concomitant]
     Active Substance: TOCILIZUMAB
     Route: 058
  411. TOCILIZUMAB [Concomitant]
     Active Substance: TOCILIZUMAB
     Route: 058
  412. TOCILIZUMAB [Concomitant]
     Active Substance: TOCILIZUMAB
     Route: 048
  413. TOCILIZUMAB [Concomitant]
     Active Substance: TOCILIZUMAB
  414. TOCILIZUMAB [Concomitant]
     Active Substance: TOCILIZUMAB
  415. TOCILIZUMAB [Concomitant]
     Active Substance: TOCILIZUMAB
     Route: 042
  416. TOCILIZUMAB [Concomitant]
     Active Substance: TOCILIZUMAB
     Route: 042
  417. TOCILIZUMAB [Concomitant]
     Active Substance: TOCILIZUMAB
     Route: 058
  418. TOCILIZUMAB [Concomitant]
     Active Substance: TOCILIZUMAB
     Route: 058
  419. TOCILIZUMAB [Concomitant]
     Active Substance: TOCILIZUMAB
     Route: 042
  420. TOCILIZUMAB [Concomitant]
     Active Substance: TOCILIZUMAB
     Route: 016
  421. TOCILIZUMAB [Concomitant]
     Active Substance: TOCILIZUMAB
     Route: 058
  422. TOCILIZUMAB [Concomitant]
     Active Substance: TOCILIZUMAB
  423. TOFACITINIB [Concomitant]
     Active Substance: TOFACITINIB
     Indication: Rheumatoid arthritis
  424. TOFACITINIB CITRATE [Concomitant]
     Active Substance: TOFACITINIB CITRATE
     Indication: Rheumatoid arthritis
     Route: 048
  425. TOFACITINIB CITRATE [Concomitant]
     Active Substance: TOFACITINIB CITRATE
  426. TOFACITINIB CITRATE [Concomitant]
     Active Substance: TOFACITINIB CITRATE
  427. TOFACITINIB CITRATE [Concomitant]
     Active Substance: TOFACITINIB CITRATE
  428. TOPIRAMATE [Concomitant]
     Active Substance: TOPIRAMATE
     Indication: Migraine
  429. TOPIRAMATE [Concomitant]
     Active Substance: TOPIRAMATE
  430. TOPIRAMATE [Concomitant]
     Active Substance: TOPIRAMATE
  431. TOPIRAMATE [Concomitant]
     Active Substance: TOPIRAMATE
  432. TRAMADOL HYDROCHLORIDE [Concomitant]
     Active Substance: TRAMADOL HYDROCHLORIDE
     Indication: Rheumatoid arthritis
  433. TRAMADOL HYDROCHLORIDE [Concomitant]
     Active Substance: TRAMADOL HYDROCHLORIDE
     Route: 014
  434. TRAMADOL HYDROCHLORIDE [Concomitant]
     Active Substance: TRAMADOL HYDROCHLORIDE
  435. USTEKINUMAB [Concomitant]
     Active Substance: USTEKINUMAB
     Indication: Product used for unknown indication
     Route: 058
  436. USTEKINUMAB [Concomitant]
     Active Substance: USTEKINUMAB
  437. USTEKINUMAB [Concomitant]
     Active Substance: USTEKINUMAB
     Route: 058
  438. XELJANZ [Concomitant]
     Active Substance: TOFACITINIB CITRATE
     Indication: Rheumatoid arthritis
     Route: 048
  439. XELJANZ [Concomitant]
     Active Substance: TOFACITINIB CITRATE
     Route: 048
  440. XELJANZ [Concomitant]
     Active Substance: TOFACITINIB CITRATE
  441. XELJANZ [Concomitant]
     Active Substance: TOFACITINIB CITRATE
  442. XELJANZ [Concomitant]
     Active Substance: TOFACITINIB CITRATE
     Route: 048
  443. XELJANZ [Concomitant]
     Active Substance: TOFACITINIB CITRATE
     Route: 048
  444. XELJANZ [Concomitant]
     Active Substance: TOFACITINIB CITRATE
     Route: 048
  445. XELJANZ [Concomitant]
     Active Substance: TOFACITINIB CITRATE
     Route: 048
  446. XELJANZ [Concomitant]
     Active Substance: TOFACITINIB CITRATE
  447. XELJANZ [Concomitant]
     Active Substance: TOFACITINIB CITRATE
  448. XELJANZ [Concomitant]
     Active Substance: TOFACITINIB CITRATE
     Route: 048
  449. XELJANZ [Concomitant]
     Active Substance: TOFACITINIB CITRATE
  450. XELJANZ [Concomitant]
     Active Substance: TOFACITINIB CITRATE
  451. DICLOFENAC POTASSIUM [Concomitant]
     Active Substance: DICLOFENAC POTASSIUM
     Indication: Product used for unknown indication
  452. ATOMOXETINE HYDROCHLORIDE [Concomitant]
     Active Substance: ATOMOXETINE HYDROCHLORIDE
     Indication: Migraine
  453. DIETARY SUPPLEMENT\MINERALS\VITAMINS [Concomitant]
     Active Substance: DIETARY SUPPLEMENT\MINERALS\VITAMINS
     Indication: Product used for unknown indication
     Dosage: 400 UNIT
  454. MENTHOL\ZINC OXIDE [Concomitant]
     Active Substance: MENTHOL\ZINC OXIDE
     Indication: Product used for unknown indication
  455. MEGLUMINE [Concomitant]
     Active Substance: MEGLUMINE
     Indication: Product used for unknown indication
  456. MYOCHRYSINE [Concomitant]
     Active Substance: GOLD SODIUM THIOMALATE
     Indication: Rheumatoid arthritis
     Route: 030
  457. PREPARATION H HYDROCORTISONE [Concomitant]
     Active Substance: HYDROCORTISONE
     Indication: Rheumatoid arthritis
  458. RANITIDINE HYDROCHLORIDE [Concomitant]
     Active Substance: RANITIDINE HYDROCHLORIDE
     Indication: Product used for unknown indication
  459. CETIRIZINE HYDROCHLORIDE [Concomitant]
     Active Substance: CETIRIZINE HYDROCHLORIDE
     Indication: Rheumatoid arthritis
  460. CETIRIZINE HYDROCHLORIDE [Concomitant]
     Active Substance: CETIRIZINE HYDROCHLORIDE
     Route: 048
  461. CETIRIZINE HYDROCHLORIDE [Concomitant]
     Active Substance: CETIRIZINE HYDROCHLORIDE
     Route: 048
  462. CETIRIZINE HYDROCHLORIDE [Concomitant]
     Active Substance: CETIRIZINE HYDROCHLORIDE
     Route: 048
  463. CETIRIZINE HYDROCHLORIDE [Concomitant]
     Active Substance: CETIRIZINE HYDROCHLORIDE
  464. CETIRIZINE HYDROCHLORIDE [Concomitant]
     Active Substance: CETIRIZINE HYDROCHLORIDE
     Route: 048
  465. CETIRIZINE HYDROCHLORIDE [Concomitant]
     Active Substance: CETIRIZINE HYDROCHLORIDE
     Route: 048
  466. CETIRIZINE HYDROCHLORIDE [Concomitant]
     Active Substance: CETIRIZINE HYDROCHLORIDE
     Route: 048
  467. CETIRIZINE HYDROCHLORIDE [Concomitant]
     Active Substance: CETIRIZINE HYDROCHLORIDE
  468. ACETAMINOPHEN AND CODEINE [Concomitant]
     Active Substance: ACETAMINOPHEN\CODEINE PHOSPHATE
     Indication: Product used for unknown indication
  469. ALENDRONATE SODIUM [Concomitant]
     Active Substance: ALENDRONATE SODIUM
     Indication: Rheumatoid arthritis
     Route: 048
  470. ALENDRONATE SODIUM [Concomitant]
     Active Substance: ALENDRONATE SODIUM
  471. ALENDRONATE SODIUM\CHOLECALCIFEROL [Concomitant]
     Active Substance: ALENDRONATE SODIUM\CHOLECALCIFEROL
     Indication: Rheumatoid arthritis
  472. CORTISONE [Concomitant]
     Active Substance: CORTISONE
     Indication: Rheumatoid arthritis
     Route: 058
  473. CORTISONE [Concomitant]
     Active Substance: CORTISONE
  474. DESOGESTREL\ETHINYL ESTRADIOL [Concomitant]
     Active Substance: DESOGESTREL\ETHINYL ESTRADIOL
     Indication: Product used for unknown indication
  475. DICLOFENAC POTASSIUM [Concomitant]
     Active Substance: DICLOFENAC POTASSIUM
     Indication: Product used for unknown indication
  476. DICLOFENAC POTASSIUM [Concomitant]
     Active Substance: DICLOFENAC POTASSIUM
  477. DICLOFENAC POTASSIUM [Concomitant]
     Active Substance: DICLOFENAC POTASSIUM
  478. ERGOCALCIFEROL [Concomitant]
     Active Substance: ERGOCALCIFEROL
     Indication: Product used for unknown indication
  479. FOLIC ACID [Concomitant]
     Active Substance: FOLIC ACID
     Indication: Rheumatoid arthritis
     Route: 048
  480. FOLIC ACID [Concomitant]
     Active Substance: FOLIC ACID
  481. FOLIC ACID [Concomitant]
     Active Substance: FOLIC ACID
     Route: 048
  482. FOLIC ACID [Concomitant]
     Active Substance: FOLIC ACID
     Route: 048
  483. FOLIC ACID [Concomitant]
     Active Substance: FOLIC ACID
     Route: 048
  484. FOLIC ACID [Concomitant]
     Active Substance: FOLIC ACID
  485. FOLIC ACID [Concomitant]
     Active Substance: FOLIC ACID
     Route: 048
  486. FOLIC ACID [Concomitant]
     Active Substance: FOLIC ACID
     Route: 048
  487. FOLIC ACID [Concomitant]
     Active Substance: FOLIC ACID
     Route: 048
  488. FOLIC ACID [Concomitant]
     Active Substance: FOLIC ACID
     Route: 048
  489. FOLIC ACID [Concomitant]
     Active Substance: FOLIC ACID
  490. ISOPROPYL ALCOHOL [Concomitant]
     Active Substance: ISOPROPYL ALCOHOL
     Indication: Product used for unknown indication
     Dosage: LIQUID TOPICAL
  491. ISOPROPYL ALCOHOL [Concomitant]
     Active Substance: ISOPROPYL ALCOHOL
     Dosage: LIQUID TOPICAL
  492. ISOPROPYL ALCOHOL [Concomitant]
     Active Substance: ISOPROPYL ALCOHOL
     Dosage: LIQUID TOPICAL
  493. NAPROXEN [Concomitant]
     Active Substance: NAPROXEN
     Indication: Rheumatoid arthritis
  494. NAPROXEN [Concomitant]
     Active Substance: NAPROXEN
  495. NAPROXEN [Concomitant]
     Active Substance: NAPROXEN
  496. NAPROXEN [Concomitant]
     Active Substance: NAPROXEN
  497. NAPROXEN [Concomitant]
     Active Substance: NAPROXEN
  498. NAPROXEN [Concomitant]
     Active Substance: NAPROXEN
  499. NEOMYCIN SULFATE [Concomitant]
     Active Substance: NEOMYCIN SULFATE
     Indication: Rheumatoid arthritis
  500. PERIOGARD [Concomitant]
     Active Substance: CHLORHEXIDINE GLUCONATE
     Indication: Product used for unknown indication
     Route: 002
  501. RIBOFLAVIN [Concomitant]
     Active Substance: RIBOFLAVIN
     Indication: Product used for unknown indication
  502. HYDROCORTISONE [Concomitant]
     Active Substance: HYDROCORTISONE
     Indication: Product used for unknown indication
  503. SULFAMETHOXAZOLE [Concomitant]
     Active Substance: SULFAMETHOXAZOLE
     Indication: Product used for unknown indication
  504. SULFAMETHOXAZOLE AND TRIMETHOPRIM [Concomitant]
     Active Substance: SULFAMETHOXAZOLE\TRIMETHOPRIM
     Indication: Product used for unknown indication
  505. THIAMINE HYDROCHLORIDE [Concomitant]
     Active Substance: THIAMINE HYDROCHLORIDE
     Indication: Product used for unknown indication
  506. TUMS [Concomitant]
     Active Substance: CALCIUM CARBONATE
     Indication: Product used for unknown indication
  507. VITAMIN A [Concomitant]
     Active Substance: VITAMIN A
     Indication: Product used for unknown indication
  508. VITAMIN D3 [Concomitant]
     Active Substance: CHOLECALCIFEROL
     Indication: Product used for unknown indication
  509. VITAMIN D3 [Concomitant]
     Active Substance: CHOLECALCIFEROL
  510. VITAMIN D3 [Concomitant]
     Active Substance: CHOLECALCIFEROL
  511. DICLOFENAC [Concomitant]
     Active Substance: DICLOFENAC
     Indication: Product used for unknown indication
     Route: 058
  512. DICLOFENAC [Concomitant]
     Active Substance: DICLOFENAC
  513. ERENUMAB-AOOE [Concomitant]
     Active Substance: ERENUMAB-AOOE
     Indication: Migraine
  514. FLUMETHASONE\SALICYLIC ACID [Concomitant]
     Active Substance: FLUMETHASONE\SALICYLIC ACID
     Indication: Product used for unknown indication
  515. MAGNESIUM CITRATE [Concomitant]
     Active Substance: MAGNESIUM CITRATE
     Indication: Product used for unknown indication
  516. METHOTREXATE SODIUM [Concomitant]
     Active Substance: METHOTREXATE SODIUM
     Indication: Rheumatoid arthritis
     Route: 058
  517. METHOTREXATE SODIUM [Concomitant]
     Active Substance: METHOTREXATE SODIUM
     Route: 048
  518. METHOTREXATE SODIUM [Concomitant]
     Active Substance: METHOTREXATE SODIUM
  519. METHOTREXATE SODIUM [Concomitant]
     Active Substance: METHOTREXATE SODIUM
  520. METHOTREXATE SODIUM [Concomitant]
     Active Substance: METHOTREXATE SODIUM
     Route: 058
  521. METHOTREXATE SODIUM [Concomitant]
     Active Substance: METHOTREXATE SODIUM
     Route: 048
  522. METHOTREXATE SODIUM [Concomitant]
     Active Substance: METHOTREXATE SODIUM
     Route: 058
  523. NICOTINAMIDE [Concomitant]
     Active Substance: NIACINAMIDE
     Indication: Product used for unknown indication

REACTIONS (2)
  - Death [Fatal]
  - Off label use [Unknown]
